FAERS Safety Report 4960219-8 (Version None)
Quarter: 2006Q1

REPORT INFORMATION
  Report Type: 
  Country: None (occurrence: None)
  Receive Date: 20060328
  Receipt Date: 20060315
  Transmission Date: 20060701
  Serious: Yes (Other)
  Sender: FDA-Public Use
  Company Number: 2006005976

PATIENT
  Age: 51 Year
  Sex: Female
  Weight: 68.0396 kg

DRUGS (8)
  1. CELEBREX [Suspect]
     Indication: ARTHRITIS
     Dosage: 200 MG
     Dates: start: 19990101
  2. GABAPENTIN [Suspect]
     Indication: HYPOAESTHESIA
     Dosage: 900 MG (300 MG, 3 IN 1 D)
     Dates: start: 20050501
  3. GABAPENTIN [Suspect]
     Indication: PAIN
     Dosage: 900 MG (300 MG, 3 IN 1 D)
     Dates: start: 20050501
  4. NORVASC [Suspect]
     Indication: HYPERTENSION
     Dates: start: 20000101
  5. BEXTRA [Suspect]
     Indication: ARTHRITIS
     Dosage: 40 MG (20 MG, 2 IN 1 D)
  6. SOMA COMPOUND ^HORNER^ (CAFFEINE, CARISOPRODOL, PHENACETIN) [Concomitant]
  7. PREMPRO [Concomitant]
  8. ACETYLSALICYLIC ACID SRT [Concomitant]

REACTIONS (12)
  - ARTHRITIS [None]
  - BLOOD CHOLESTEROL INCREASED [None]
  - DISEASE RECURRENCE [None]
  - DRUG EFFECT DECREASED [None]
  - FATIGUE [None]
  - FEELING ABNORMAL [None]
  - HYPERTENSION [None]
  - HYPOAESTHESIA [None]
  - PHARMACEUTICAL PRODUCT COMPLAINT [None]
  - POSTOPERATIVE WOUND INFECTION [None]
  - SCAR [None]
  - SPINAL COLUMN STENOSIS [None]
